FAERS Safety Report 6871685-5 (Version None)
Quarter: 2010Q3

REPORT INFORMATION
  Report Type: 
  Country: None (occurrence: None)
  Receive Date: 20100723
  Receipt Date: 20100715
  Transmission Date: 20110219
  Serious: Yes (Hospitalization)
  Sender: FDA-Public Use
  Company Number: GXKR2010CH07920

PATIENT
  Age: 78 Year
  Sex: Male

DRUGS (4)
  1. BILOL (NGX) [Suspect]
     Dosage: 5 MG/DAY
     Route: 048
     Dates: end: 20091021
  2. MARCUMAR [Concomitant]
     Dosage: UNK
     Route: 048
  3. CO-ENATEC [Concomitant]
     Dosage: UNK
     Route: 048
  4. PRAVASTATIN SODIUM [Concomitant]
     Dosage: UNK
     Route: 048

REACTIONS (2)
  - ATRIOVENTRICULAR BLOCK SECOND DEGREE [None]
  - CARDIAC PACEMAKER INSERTION [None]
